FAERS Safety Report 10071497 (Version 1)
Quarter: 2014Q2

REPORT INFORMATION
  Report Type: Report from Study
  Country: DE (occurrence: DE)
  Receive Date: 20140410
  Receipt Date: 20140410
  Transmission Date: 20141212
  Serious: Yes (Other)
  Sender: FDA-Public Use
  Company Number: DE-BAXTER-2014BAX017457

PATIENT
  Sex: 0

DRUGS (3)
  1. ENDOXAN 1G [Suspect]
     Indication: BREAST CANCER
     Route: 042
  2. DOXORUBICIN [Suspect]
     Indication: BREAST CANCER
     Route: 042
  3. FLUOROURACIL [Suspect]
     Indication: BREAST CANCER
     Route: 042

REACTIONS (1)
  - Fibrin D dimer increased [Unknown]
